FAERS Safety Report 8175947-3 (Version None)
Quarter: 2012Q1

REPORT INFORMATION
  Report Type: 
  Country: None (occurrence: None)
  Receive Date: 20120301
  Receipt Date: 20120221
  Transmission Date: 20120608
  Serious: No
  Sender: FDA-Public Use
  Company Number: US-PFIZER INC-2012037246

PATIENT
  Sex: Female
  Weight: 61.224 kg

DRUGS (2)
  1. LATANOPROST [Suspect]
     Indication: GLAUCOMA
     Dosage: UNK
     Route: 047
     Dates: start: 20120125
  2. SYNTHROID [Concomitant]
     Dosage: 112 UG, DAILY
     Route: 048

REACTIONS (2)
  - BURNING SENSATION [None]
  - PRURITUS [None]
